FAERS Safety Report 5268882-1 (Version None)
Quarter: 2007Q1

REPORT INFORMATION
  Report Type: 
  Country: None (occurrence: None)
  Receive Date: 20070319
  Receipt Date: 20070306
  Transmission Date: 20070707
  Serious: Yes (Death)
  Sender: FDA-Public Use
  Company Number: US-JNJFOC-20070302416

PATIENT
  Age: 16 Month
  Sex: Male

DRUGS (2)
  1. ACETAMINOPHEN / CHLORPHENIRAMINE / DEXTROMETHORPHAN / PSEUDOEPHEDRINE [Suspect]
     Indication: DRUG USE FOR UNKNOWN INDICATION
  2. ETHANOL [Suspect]
     Indication: DRUG USE FOR UNKNOWN INDICATION

REACTIONS (2)
  - ANOXIC ENCEPHALOPATHY [None]
  - DRUG TOXICITY [None]
